FAERS Safety Report 4566407-7 (Version None)
Quarter: 2005Q1

REPORT INFORMATION
  Report Type: 
  Country: None (occurrence: None)
  Receive Date: 20050126
  Receipt Date: 20050126
  Transmission Date: 20050727
  Serious: Yes (Life-Threatening, Disabling, Other)
  Sender: FDA-Public Use
  Company Number: None

PATIENT
  Sex: Female
  Weight: 68.0396 kg

DRUGS (1)
  1. KWELL [Suspect]
     Indication: LICE INFESTATION
     Dosage: NOTHING REGULAR, JUST SHAMPOO IT ON AND LEAVE IT THERE ABOUT AN HOUR
     Dates: start: 19780101, end: 19800101

REACTIONS (1)
  - LYMPHADENOPATHY [None]
